FAERS Safety Report 6301466-2 (Version None)
Quarter: 2009Q3

REPORT INFORMATION
  Report Type: 
  Country: None (occurrence: None)
  Receive Date: 20090807
  Receipt Date: 20090803
  Transmission Date: 20100115
  Serious: Yes (Hospitalization, Congenital Anomaly)
  Sender: FDA-Public Use
  Company Number: A0756635A

PATIENT
  Sex: Female
  Weight: 2.7 kg

DRUGS (3)
  1. PAXIL [Suspect]
     Indication: DEPRESSION
     Dates: start: 20060101, end: 20060201
  2. MOTRIN [Concomitant]
  3. VITAMIN TAB [Concomitant]

REACTIONS (4)
  - ARTERIOVENOUS MALFORMATION [None]
  - ATRIAL SEPTAL DEFECT [None]
  - CARDIAC FAILURE [None]
  - DRUG EXPOSURE DURING PREGNANCY [None]
